FAERS Safety Report 6196750-X (Version None)
Quarter: 2009Q2

REPORT INFORMATION
  Report Type: 
  Country: None (occurrence: None)
  Receive Date: 20090520
  Receipt Date: 20090513
  Transmission Date: 20091009
  Serious: Yes (Hospitalization)
  Sender: FDA-Public Use
  Company Number: ES-MERCK-0905ESP00024

PATIENT
  Age: 79 Year
  Sex: Female

DRUGS (6)
  1. HYZAAR [Suspect]
     Indication: HYPERTENSION
     Route: 048
     Dates: start: 20030101, end: 20090101
  2. AZATHIOPRINE [Concomitant]
     Indication: MYASTHENIA GRAVIS
     Route: 048
  3. PREDNISONE [Concomitant]
     Indication: MYASTHENIA GRAVIS
     Route: 048
     Dates: end: 20080728
  4. METFORMIN HYDROCHLORIDE [Suspect]
     Indication: DIABETES MELLITUS
     Route: 048
     Dates: start: 20081226
  5. PYRIDOSTIGMINE BROMIDE [Concomitant]
     Indication: MYASTHENIA GRAVIS
     Route: 048
  6. PAROXETINE HYDROCHLORIDE [Concomitant]
     Indication: MYASTHENIA GRAVIS
     Route: 048

REACTIONS (4)
  - ANOREXIA [None]
  - DIARRHOEA [None]
  - DRUG INTERACTION [None]
  - RENAL FAILURE ACUTE [None]
